FAERS Safety Report 10135340 (Version 1)
Quarter: 2014Q2

REPORT INFORMATION
  Report Type: Report from Study
  Country: US (occurrence: US)
  Receive Date: 20140428
  Receipt Date: 20140428
  Transmission Date: 20141212
  Serious: Yes (Other)
  Sender: FDA-Public Use
  Company Number: US-ABBVIE-14P-163-1226936-00

PATIENT
  Age: 54 Year
  Sex: Male
  Weight: 113.5 kg

DRUGS (4)
  1. HUMIRA [Suspect]
     Indication: PSORIASIS
     Dosage: ONE DOSE
  2. HUMIRA [Suspect]
     Dosage: ONE WEEK AFTER 80 MG DOSE
     Dates: start: 2013
  3. VITAMINS [Concomitant]
     Indication: VITAMIN SUPPLEMENTATION
  4. TESTRED [Concomitant]
     Indication: BLOOD TESTOSTERONE DECREASED

REACTIONS (14)
  - Chondropathy [Recovered/Resolved]
  - Osteoarthritis [Recovered/Resolved]
  - Joint lock [Recovered/Resolved]
  - Osteoarthritis [Unknown]
  - Scratch [Unknown]
  - Drug dose omission [Not Recovered/Not Resolved]
  - Needle issue [Not Recovered/Not Resolved]
  - Injection site pain [Not Recovered/Not Resolved]
  - Injection site pain [Unknown]
  - Psoriasis [Not Recovered/Not Resolved]
  - Device issue [Not Recovered/Not Resolved]
  - Injection site bruising [Not Recovered/Not Resolved]
  - Therapeutic response changed [Not Recovered/Not Resolved]
  - Arthralgia [Not Recovered/Not Resolved]
